FAERS Safety Report 4763820-X (Version None)
Quarter: 2005Q3

REPORT INFORMATION
  Report Type: 
  Country: None (occurrence: None)
  Receive Date: 20050908
  Receipt Date: 20050906
  Transmission Date: 20060218
  Serious: Yes (Death)
  Sender: FDA-Public Use
  Company Number: US-SANOFI-SYNTHELABO-F01200501814

PATIENT
  Sex: Female

DRUGS (4)
  1. OXALIPLATIN [Suspect]
     Indication: COLON CANCER
     Dosage: 180MG Q3W
     Route: 042
     Dates: start: 20050811, end: 20050811
  2. CAPECITABINE [Suspect]
     Route: 048
     Dates: start: 20050721, end: 20050811
  3. BEVACIZUMAB [Suspect]
     Dosage: 511.3 MG Q3W
     Route: 042
     Dates: start: 20050811, end: 20050811
  4. IMODIUM [Concomitant]
     Dates: start: 20050731

REACTIONS (1)
  - DEATH [None]
